FAERS Safety Report 5572489-6 (Version None)
Quarter: 2007Q4

REPORT INFORMATION
  Report Type: 
  Country: None (occurrence: None)
  Receive Date: 20071219
  Receipt Date: 20071210
  Transmission Date: 20080405
  Serious: Yes (Life-Threatening, Hospitalization)
  Sender: FDA-Public Use
  Company Number: 2007EU002713

PATIENT
  Age: 41 Year
  Sex: Female
  Weight: 147 kg

DRUGS (2)
  1. VESICARE [Suspect]
     Dosage: 5 MG, ORAL
     Route: 048
     Dates: start: 20071104, end: 20071113
  2. CARBAMAZEPINE [Suspect]
     Dosage: ORAL
     Route: 048
     Dates: start: 20071103, end: 20071113

REACTIONS (1)
  - TOXIC EPIDERMAL NECROLYSIS [None]
